FAERS Safety Report 20111585 (Version 1)
Quarter: 2021Q4

REPORT INFORMATION
  Report Type: Spontaneous
  Country: US (occurrence: US)
  Receive Date: 20211125
  Receipt Date: 20211125
  Transmission Date: 20220303
  Serious: No
  Sender: FDA-Public Use
  Company Number: US-SCIEGENPHARMA-2021SCISPO00948

PATIENT
  Age: 86 Year
  Sex: Male

DRUGS (1)
  1. ATORVASTATIN CALCIUM [Suspect]
     Active Substance: ATORVASTATIN CALCIUM
     Indication: Cerebrovascular accident
     Route: 048

REACTIONS (3)
  - Limb discomfort [Unknown]
  - Gait disturbance [Unknown]
  - Limb injury [Unknown]
